FAERS Safety Report 19661226 (Version 1)
Quarter: 2021Q3

REPORT INFORMATION
  Report Type: Spontaneous
  Country: TW (occurrence: TW)
  Receive Date: 20210805
  Receipt Date: 20210805
  Transmission Date: 20211014
  Serious: Yes (Death, Hospitalization, Other)
  Sender: FDA-Public Use
  Company Number: TW-PFIZER INC-202100959746

PATIENT
  Age: 69 Year
  Sex: Female
  Weight: 61.5 kg

DRUGS (14)
  1. COLCHICINE. [Concomitant]
     Active Substance: COLCHICINE
     Dosage: 0.5 MG, 1X/DAY
     Dates: start: 20210506
  2. A?CAL [Concomitant]
     Active Substance: CALCIUM CARBONATE
     Dosage: UNK, 3X/DAY
     Dates: start: 20210506
  3. METHOTREXATE SODIUM. [Suspect]
     Active Substance: METHOTREXATE SODIUM
     Indication: RHEUMATOID ARTHRITIS
     Dosage: 7.5 MG, WEEKLY
     Route: 048
     Dates: start: 20210625, end: 20210713
  4. CONCOR [Concomitant]
     Active Substance: BISOPROLOL FUMARATE
     Dosage: 1.25 MG, 1X/DAY
     Dates: start: 20210506
  5. SUPEROCIN [Concomitant]
     Dosage: 500 MG
     Dates: start: 20210506
  6. PREDNISOLONE. [Concomitant]
     Active Substance: PREDNISOLONE
     Dosage: 10.0 MG, 1X/DAY
     Dates: start: 20210506
  7. NEUROQUEL [Concomitant]
     Dosage: 25 MG, 1X/DAY
     Dates: start: 20210506
  8. DAILYCARE ACTIBEST [Concomitant]
     Dosage: UNK, 3X/DAY
     Dates: start: 20210506
  9. FOLIC ACID. [Concomitant]
     Active Substance: FOLIC ACID
     Dosage: UNK, 1X/DAY
     Dates: start: 20210506
  10. NESP [Concomitant]
     Active Substance: DARBEPOETIN ALFA
     Dosage: UNK, WEEKLY
     Dates: start: 20210506
  11. RIVOTRIL [Concomitant]
     Active Substance: CLONAZEPAM
     Dosage: 0.5 MG, 1X/DAY
     Dates: start: 20210506
  12. RADI K [Concomitant]
     Dosage: 595.0 MG, 3X/DAY
     Dates: start: 20210506
  13. HYDROQUINE [Concomitant]
     Active Substance: HYDROXYCHLOROQUINE SULFATE
     Dosage: 200 MG, AS NEEDED THREE TIMES
     Dates: start: 20210528
  14. OMP [Concomitant]
     Active Substance: OMEPRAZOLE
     Dosage: 20 MG, 1X/DAY
     Dates: start: 20210506

REACTIONS (20)
  - Febrile neutropenia [Fatal]
  - Thrombosis [Fatal]
  - Platelet count decreased [Unknown]
  - Cytopenia [Unknown]
  - Candida infection [Fatal]
  - Asthenia [Unknown]
  - Off label use [Unknown]
  - Pancytopenia [Unknown]
  - Sepsis [Unknown]
  - Thrombocytopenia [Fatal]
  - Bacteraemia [Unknown]
  - Neutropenia [Fatal]
  - Pyrexia [Fatal]
  - Anaemia [Fatal]
  - Pain [Unknown]
  - Wound [Unknown]
  - Mouth ulceration [Fatal]
  - Thrombosis [Unknown]
  - Dysphagia [Fatal]
  - Blood pressure decreased [Fatal]

NARRATIVE: CASE EVENT DATE: 20210625
